FAERS Safety Report 5570132-3 (Version None)
Quarter: 2007Q4

REPORT INFORMATION
  Report Type: 
  Country: None (occurrence: None)
  Receive Date: 20071217
  Receipt Date: 20071206
  Transmission Date: 20080405
  Serious: Yes (Other)
  Sender: FDA-Public Use
  Company Number: 2007BI025818

PATIENT
  Age: 59 Year
  Sex: Female

DRUGS (4)
  1. AVONEX [Suspect]
     Indication: RELAPSING-REMITTING MULTIPLE SCLEROSIS
     Dosage: 30 UG; QW; IM
     Route: 030
     Dates: start: 20030101
  2. DANTROLENE SODIUM [Concomitant]
  3. EVISTA [Concomitant]
  4. CALCIUM  CARBONATE [Concomitant]

REACTIONS (2)
  - HYPERTROPHIC CARDIOMYOPATHY [None]
  - PARAESTHESIA [None]
